FAERS Safety Report 4406792-X (Version None)
Quarter: 2004Q3

REPORT INFORMATION
  Report Type: 
  Country: None (occurrence: None)
  Receive Date: 20040723
  Receipt Date: 20040319
  Transmission Date: 20050211
  Serious: Yes (Hospitalization, Other)
  Sender: FDA-Public Use
  Company Number: PHHO2004CO04169

PATIENT
  Age: 28 Year
  Sex: Male

DRUGS (2)
  1. GLEEVEC [Suspect]
     Indication: CHRONIC MYELOID LEUKAEMIA
     Dosage: 600 MG, QD
     Route: 048
     Dates: start: 20021001
  2. GLEEVEC [Suspect]
     Dosage: 800 MG, QD
     Route: 048

REACTIONS (5)
  - BLAST CRISIS IN MYELOGENOUS LEUKAEMIA [None]
  - HAEMOGLOBIN DECREASED [None]
  - LEUKOCYTOSIS [None]
  - SPLENOMEGALY [None]
  - THROMBOCYTOPENIA [None]
